FAERS Safety Report 5244431-9 (Version None)
Quarter: 2007Q1

REPORT INFORMATION
  Report Type: 
  Country: None (occurrence: None)
  Receive Date: 20070222
  Receipt Date: 20070213
  Transmission Date: 20070707
  Serious: Yes (Other)
  Sender: FDA-Public Use
  Company Number: US-PFIZER INC-2006076272

PATIENT
  Sex: Male
  Weight: 106.6 kg

DRUGS (4)
  1. BEXTRA [Suspect]
     Indication: ARTHRITIS
     Route: 048
     Dates: start: 20030729, end: 20031130
  2. VIOXX [Suspect]
     Route: 048
     Dates: start: 20010711, end: 20030901
  3. INSULIN [Concomitant]
  4. ORAL ANTIDIABETICS [Concomitant]
     Route: 048
     Dates: start: 19950101

REACTIONS (3)
  - CEREBROVASCULAR ACCIDENT [None]
  - DEEP VEIN THROMBOSIS [None]
  - PULMONARY EMBOLISM [None]
